FAERS Safety Report 15695810 (Version 3)
Quarter: 2019Q1

REPORT INFORMATION
  Report Type: Spontaneous
  Country: JP (occurrence: JP)
  Receive Date: 20181206
  Receipt Date: 20190115
  Transmission Date: 20190417
  Serious: No
  Sender: FDA-Public Use
  Company Number: JP-ABBVIE-18K-087-2578545-00

PATIENT
  Age: 66 Year
  Sex: Male
  Weight: 53.9 kg

DRUGS (12)
  1. FAMOTIDINE. [Concomitant]
     Active Substance: FAMOTIDINE
     Indication: CHRONIC GASTRITIS
     Route: 048
  2. URSODEOXYCHOLIC ACID [Concomitant]
     Active Substance: URSODIOL
     Indication: CHRONIC HEPATITIS C
     Route: 048
     Dates: end: 20181107
  3. URSODEOXYCHOLIC ACID [Concomitant]
     Active Substance: URSODIOL
     Indication: HEPATITIS
     Dates: end: 20181107
  4. POLAPREZINC [Concomitant]
     Active Substance: POLAPREZINC
     Indication: CHRONIC GASTRITIS
     Route: 048
  5. IMIDAPRIL HYDROCHLORIDE [Concomitant]
     Active Substance: IMIDAPRIL HYDROCHLORIDE
     Indication: ANGINA PECTORIS
     Route: 048
  6. ASPIRIN. [Concomitant]
     Active Substance: ASPIRIN
     Indication: ANGINA PECTORIS
     Route: 048
  7. AMLODIPINE BESILATE [Concomitant]
     Active Substance: AMLODIPINE BESYLATE
     Indication: ANGINA PECTORIS
     Route: 048
  8. ETIZOLAM [Concomitant]
     Active Substance: ETIZOLAM
     Indication: INSOMNIA
     Route: 048
  9. MAVIRET [Suspect]
     Active Substance: GLECAPREVIR\PIBRENTASVIR
     Indication: CHRONIC HEPATITIS C
     Route: 048
     Dates: start: 20181010, end: 20181120
  10. CARVEDILOL. [Concomitant]
     Active Substance: CARVEDILOL
     Indication: PRODUCT USED FOR UNKNOWN INDICATION
     Route: 048
  11. TRIAZOLAM. [Concomitant]
     Active Substance: TRIAZOLAM
     Indication: INSOMNIA
     Route: 048
  12. ISOSORBIDE DINITRATE. [Concomitant]
     Active Substance: ISOSORBIDE DINITRATE
     Indication: ANGINA PECTORIS
     Route: 062

REACTIONS (4)
  - Pain in extremity [Not Recovered/Not Resolved]
  - Herpes zoster [Recovering/Resolving]
  - Pruritus [Recovering/Resolving]
  - Peripheral swelling [Recovering/Resolving]

NARRATIVE: CASE EVENT DATE: 2018
